FAERS Safety Report 14589894 (Version 1)
Quarter: 2018Q1

REPORT INFORMATION
  Report Type: Spontaneous
  Country: US (occurrence: US)
  Receive Date: 20180302
  Receipt Date: 20180302
  Transmission Date: 20180509
  Serious: No
  Sender: FDA-Public Use
  Company Number: US-TEVA-2018-US-865677

PATIENT

DRUGS (1)
  1. TRAMADOL. [Suspect]
     Active Substance: TRAMADOL
     Dosage: 2 PILLS EVERY 6 HOURS

REACTIONS (12)
  - Dysphagia [Unknown]
  - Eye irritation [Unknown]
  - Hypoaesthesia [Unknown]
  - Headache [Unknown]
  - Paraesthesia [Unknown]
  - Product substitution issue [Unknown]
  - Eye pain [Unknown]
  - Ocular discomfort [Unknown]
  - Lacrimation increased [Unknown]
  - Cold sweat [Unknown]
  - Feeling abnormal [Unknown]
  - Pain in extremity [Unknown]
